FAERS Safety Report 17429467 (Version 1)
Quarter: 2020Q1

REPORT INFORMATION
  Report Type: Spontaneous
  Country: US (occurrence: US)
  Receive Date: 20200201
  Receipt Date: 20200201
  Transmission Date: 20200409
  Serious: Yes (Death, Hospitalization)
  Sender: FDA-Public Use
  Company Number: None

PATIENT
  Age: 77 Year
  Sex: Male
  Weight: 87.3 kg

DRUGS (2)
  1. CASODEX [Suspect]
     Active Substance: BICALUTAMIDE
     Dates: end: 20200116
  2. LEUPROLIDE ACETATE. [Suspect]
     Active Substance: LEUPROLIDE ACETATE
     Dates: end: 20191223

REACTIONS (6)
  - Asthenia [None]
  - Hypersomnia [None]
  - General physical health deterioration [None]
  - Cardiac arrest [None]
  - Ventricular fibrillation [None]
  - Loss of consciousness [None]

NARRATIVE: CASE EVENT DATE: 20200117
